FAERS Safety Report 5714675-8 (Version None)
Quarter: 2008Q2

REPORT INFORMATION
  Report Type: 
  Country: None (occurrence: None)
  Receive Date: 20080423
  Receipt Date: 20080421
  Transmission Date: 20081010
  Serious: Yes (Disabling)
  Sender: FDA-Public Use
  Company Number: FR-AVENTIS-200811493FR

PATIENT
  Age: 47 Year
  Sex: Female

DRUGS (17)
  1. TAXOTERE [Suspect]
     Indication: BREAST CANCER
     Route: 042
     Dates: start: 20070123, end: 20070123
  2. NEULASTA [Suspect]
     Indication: CHEMOTHERAPY
     Route: 058
  3. NEULASTA [Suspect]
     Indication: PREMEDICATION
     Route: 058
  4. ENDOXAN [Suspect]
     Indication: BREAST CANCER
     Route: 042
     Dates: start: 20070123, end: 20070123
  5. POLARAMINE                         /00043702/ [Suspect]
     Indication: CHEMOTHERAPY
  6. POLARAMINE                         /00043702/ [Suspect]
     Indication: PREMEDICATION
  7. TAMOXIFEN CITRATE [Suspect]
     Indication: BREAST CANCER
  8. FARMORUBICINE                      /00699301/ [Suspect]
     Indication: BREAST CANCER
     Route: 042
     Dates: start: 20070123, end: 20070123
  9. CARDIOXANE [Suspect]
     Indication: BREAST CANCER
     Route: 042
     Dates: start: 20070123, end: 20070123
  10. ZOPHREN                            /00955301/ [Suspect]
     Indication: CHEMOTHERAPY
  11. ZOPHREN                            /00955301/ [Suspect]
     Indication: PREMEDICATION
  12. METOCLOPRAMIDE HCL [Suspect]
     Indication: CHEMOTHERAPY
  13. METOCLOPRAMIDE HCL [Suspect]
     Indication: PREMEDICATION
  14. SOLU-MEDROL [Suspect]
     Indication: CHEMOTHERAPY
  15. OSMOTAN [Suspect]
     Indication: CHEMOTHERAPY
  16. OSMOTAN [Suspect]
     Indication: PREMEDICATION
  17. HERCEPTIN [Suspect]
     Indication: BREAST CANCER

REACTIONS (1)
  - HYPOTHYROIDISM [None]
